FAERS Safety Report 22380411 (Version 2)
Quarter: 2023Q2

REPORT INFORMATION
  Report Type: Spontaneous
  Country: FR (occurrence: FR)
  Receive Date: 20230529
  Receipt Date: 20230608
  Transmission Date: 20230722
  Serious: Yes (Other)
  Sender: FDA-Public Use
  Company Number: FR-BIOGARAN-B23000712

PATIENT
  Age: 35 Year
  Sex: Female
  Weight: 59 kg

DRUGS (7)
  1. VENLAFAXINE [Suspect]
     Active Substance: VENLAFAXINE HYDROCHLORIDE
     Indication: Depression
     Dosage: NOS, UNKNOWN
     Route: 048
  2. OLANZAPINE [Suspect]
     Active Substance: OLANZAPINE
     Indication: Mental disorder
     Dosage: OLANZAPINE BIOGARAN UNKNOWN
     Route: 048
  3. ALPRAZOLAM [Suspect]
     Active Substance: ALPRAZOLAM
     Indication: Product used for unknown indication
     Dosage: ALPRAZOLAM NOS
     Route: 048
  4. DULOXETINE [Suspect]
     Active Substance: DULOXETINE
     Indication: Fibromyalgia
     Dosage: 1 DOSAGE FORM DAILY, DULOXETINE BIOGARAN 60 MG GELULE GASTRO-RESISTANTE
     Route: 048
     Dates: start: 202203, end: 202211
  5. DULOXETINE [Suspect]
     Active Substance: DULOXETINE
     Indication: Pain
     Dosage: 1 DF QD
     Route: 048
     Dates: start: 202203, end: 202301
  6. DULOXETINE [Suspect]
     Active Substance: DULOXETINE
     Indication: Depression
  7. ACETAMINOPHEN\CODEINE PHOSPHATE [Concomitant]
     Active Substance: ACETAMINOPHEN\CODEINE PHOSPHATE
     Indication: Pain
     Route: 048
     Dates: start: 202201

REACTIONS (10)
  - Mental impairment [Unknown]
  - Hallucination [Recovered/Resolved]
  - Prosopagnosia [Unknown]
  - Tinnitus [Unknown]
  - Withdrawal syndrome [Recovered/Resolved]
  - Increased appetite [Recovered/Resolved]
  - Drug ineffective [Unknown]
  - Therapy cessation [Unknown]
  - Intentional product misuse [Unknown]
  - Product use in unapproved indication [Unknown]

NARRATIVE: CASE EVENT DATE: 20221201
